FAERS Safety Report 9370321 (Version 1)
Quarter: 2013Q2

REPORT INFORMATION
  Report Type: Spontaneous
  Country: GB (occurrence: GB)
  Receive Date: 20130626
  Receipt Date: 20130626
  Transmission Date: 20140414
  Serious: Yes (Disabling)
  Sender: FDA-Public Use
  Company Number: GB-ABBOTT-12P-167-1025339-00

PATIENT
  Age: 54 Year
  Sex: Female

DRUGS (2)
  1. HUMIRA [Suspect]
     Indication: RHEUMATOID ARTHRITIS
     Route: 058
     Dates: start: 201202, end: 201301
  2. LISINOPRIL [Concomitant]
     Indication: HYPERTENSION
     Dates: start: 2005

REACTIONS (11)
  - Malaise [Recovering/Resolving]
  - Wrong technique in drug usage process [Recovering/Resolving]
  - Incorrect route of drug administration [Recovering/Resolving]
  - Malaise [Unknown]
  - Lethargy [Unknown]
  - Myalgia [Unknown]
  - Hyperhidrosis [Unknown]
  - Decreased appetite [Unknown]
  - Chromaturia [Unknown]
  - Diarrhoea [Unknown]
  - Viral infection [Unknown]
